FAERS Safety Report 13597012 (Version 1)
Quarter: 2017Q2

REPORT INFORMATION
  Report Type: Spontaneous
  Country: JP (occurrence: JP)
  Receive Date: 20170531
  Receipt Date: 20170531
  Transmission Date: 20170830
  Serious: Yes (Hospitalization, Other)
  Sender: FDA-Public Use
  Company Number: JP-ROCHE-1941405

PATIENT
  Age: 67 Year
  Sex: Female
  Weight: 57 kg

DRUGS (6)
  1. TAMIFLU [Suspect]
     Active Substance: OSELTAMIVIR PHOSPHATE
     Indication: INFLUENZA
     Route: 048
     Dates: start: 20170330
  2. PL [Suspect]
     Active Substance: ACETAMINOPHEN\CAFFEINE\PROMETHAZINE\SALICYLAMIDE
     Indication: COUGH
     Dosage: OTHER PURPOSES: SOUND THROAT?RECENT DOSE ON 30/MAR/2017
     Route: 048
     Dates: start: 20170329
  3. RABEPRAZOLE NA [Concomitant]
     Active Substance: RABEPRAZOLE SODIUM
     Route: 048
     Dates: start: 20170310
  4. BELSOMRA [Suspect]
     Active Substance: SUVOREXANT
     Indication: INSOMNIA
     Route: 048
     Dates: start: 20170310
  5. PITAVASTATIN CALCIUM [Concomitant]
     Active Substance: PITAVASTATIN CALCIUM
     Route: 048
     Dates: start: 20170310
  6. FEXOFENADINE HYDROCHLORIDE. [Concomitant]
     Active Substance: FEXOFENADINE HYDROCHLORIDE
     Route: 048
     Dates: start: 20170310

REACTIONS (7)
  - Loss of consciousness [Recovering/Resolving]
  - Subcutaneous haematoma [Unknown]
  - Fall [Unknown]
  - Back pain [Not Recovered/Not Resolved]
  - Bone contusion [Unknown]
  - Contusion [Recovering/Resolving]
  - Headache [Not Recovered/Not Resolved]

NARRATIVE: CASE EVENT DATE: 20170331
